FAERS Safety Report 14153687 (Version 2)
Quarter: 2018Q1

REPORT INFORMATION
  Report Type: Spontaneous
  Country: US (occurrence: US)
  Receive Date: 20171102
  Receipt Date: 20180201
  Transmission Date: 20180508
  Serious: No
  Sender: FDA-Public Use
  Company Number: US-SA-2017SA184571

PATIENT
  Age: 71 Year
  Sex: Female

DRUGS (2)
  1. PRALUENT [Suspect]
     Active Substance: ALIROCUMAB
     Indication: BLOOD CHOLESTEROL INCREASED
     Route: 058
     Dates: start: 20160526, end: 20170802
  2. ALIROCUMAB PREFILLED PEN [Suspect]
     Active Substance: ALIROCUMAB
     Indication: BLOOD CHOLESTEROL INCREASED
     Dates: start: 20160526, end: 20170802

REACTIONS (6)
  - Pain in extremity [Unknown]
  - Chest pain [Unknown]
  - Productive cough [Unknown]
  - Initial insomnia [Unknown]
  - Pain in extremity [Unknown]
  - Arthralgia [Unknown]

NARRATIVE: CASE EVENT DATE: 20170922
